FAERS Safety Report 18758552 (Version 1)
Quarter: 2021Q1

REPORT INFORMATION
  Report Type: Spontaneous
  Country: FI (occurrence: FI)
  Receive Date: 20210119
  Receipt Date: 20210119
  Transmission Date: 20210419
  Serious: Yes (Death)
  Sender: FDA-Public Use
  Company Number: FI-TEVA-2021-FI-1869230

PATIENT
  Age: 65 Year
  Sex: Female

DRUGS (2)
  1. AMOXIN COMP [Suspect]
     Active Substance: AMOXICILLIN\CLAVULANIC ACID
     Dates: start: 20200106, end: 20200111
  2. TAZOCIN [Suspect]
     Active Substance: PIPERACILLIN SODIUM\TAZOBACTAM SODIUM
     Dates: start: 20200103, end: 20200106

REACTIONS (4)
  - Stevens-Johnson syndrome [Fatal]
  - Liver function test increased [Fatal]
  - C-reactive protein increased [Fatal]
  - Urticaria [Fatal]

NARRATIVE: CASE EVENT DATE: 202001
